FAERS Safety Report 8862206 (Version 7)
Quarter: 2017Q4

REPORT INFORMATION
  Report Type: Spontaneous
  Country: US (occurrence: US)
  Receive Date: 20121026
  Receipt Date: 20171106
  Transmission Date: 20180321
  Serious: Yes (Hospitalization, Disabling, Other)
  Sender: FDA-Public Use
  Company Number: US-009507513-1210USA010260

PATIENT
  Sex: Female
  Weight: 52.61 kg

DRUGS (5)
  1. FOSAMAX [Suspect]
     Active Substance: ALENDRONATE SODIUM
     Indication: OSTEOPOROSIS
  2. VITAMIN D [Concomitant]
     Active Substance: CHOLECALCIFEROL
     Indication: OSTEOPOROSIS
     Dosage: 400 DF, BID
  3. FOSAMAX [Suspect]
     Active Substance: ALENDRONATE SODIUM
     Indication: OSTEOPOROSIS
     Dosage: 70 MG, QW
     Route: 048
     Dates: start: 2004, end: 20080121
  4. ALENDRONATE SODIUM. [Suspect]
     Active Substance: ALENDRONATE SODIUM
     Indication: OSTEOPOROSIS
     Dosage: 70 MG, QW
     Route: 048
     Dates: start: 20080217, end: 20111121
  5. CALCIUM (UNSPECIFIED) [Concomitant]
     Active Substance: CALCIUM
     Indication: OSTEOPOROSIS
     Dosage: 500400 DF, TID

REACTIONS (18)
  - Diverticulitis [Unknown]
  - Femur fracture [Unknown]
  - Osteoporosis [Not Recovered/Not Resolved]
  - Lung neoplasm malignant [Unknown]
  - Nephrolithiasis [Unknown]
  - Breast mass [Unknown]
  - Intramedullary rod insertion [Not Recovered/Not Resolved]
  - Femur fracture [Not Recovered/Not Resolved]
  - Atrial fibrillation [Unknown]
  - Stress fracture [Not Recovered/Not Resolved]
  - Viral cardiomyopathy [Unknown]
  - Femur fracture [Not Recovered/Not Resolved]
  - Laparoscopy [Unknown]
  - Kyphosis [Unknown]
  - Spinal osteoarthritis [Unknown]
  - Low turnover osteopathy [Not Recovered/Not Resolved]
  - Hypertension [Unknown]
  - Oestrogen deficiency [Unknown]

NARRATIVE: CASE EVENT DATE: 20040517
